FAERS Safety Report 4832545-4 (Version None)
Quarter: 2005Q4

REPORT INFORMATION
  Report Type: 
  Country: None (occurrence: None)
  Receive Date: 20051121
  Receipt Date: 20051109
  Transmission Date: 20060501
  Serious: Yes (Hospitalization)
  Sender: FDA-Public Use
  Company Number: FI-AMGEN-UK155929

PATIENT
  Sex: Male

DRUGS (8)
  1. ARANESP [Suspect]
     Indication: MYELODYSPLASTIC SYNDROME
     Route: 058
     Dates: start: 20050607
  2. RED BLOOD CELLS [Concomitant]
     Route: 041
  3. NEUPOGEN [Concomitant]
     Route: 065
     Dates: start: 20050701
  4. CARDIZEM [Concomitant]
  5. PERSANTIN [Concomitant]
  6. FINASTERIDE [Concomitant]
  7. NEXIUM [Concomitant]
  8. NITRO [Concomitant]

REACTIONS (5)
  - CHEST PAIN [None]
  - DRUG INEFFECTIVE [None]
  - ISCHAEMIA [None]
  - PNEUMONIA [None]
  - THERAPY NON-RESPONDER [None]
